FAERS Safety Report 9727025 (Version 1)
Quarter: 2013Q4

REPORT INFORMATION
  Report Type: Spontaneous
  Country: US (occurrence: US)
  Receive Date: 20131203
  Receipt Date: 20131203
  Transmission Date: 20140711
  Serious: No
  Sender: FDA-Public Use
  Company Number: US-NOVEN-13US007090

PATIENT
  Sex: Female

DRUGS (8)
  1. FENTANYL [Suspect]
     Indication: FIBROMYALGIA
     Dosage: 100 MCG/HR, ONE PATCH EVERY 2 DAYS
     Route: 062
     Dates: start: 20130608
  2. FENTANYL [Suspect]
     Indication: PANCREATITIS CHRONIC
  3. FENTANYL [Suspect]
     Indication: ARTHRITIS
  4. OXYCODONE [Concomitant]
  5. WELLBUTRIN [Concomitant]
  6. ADVAIR [Concomitant]
  7. ALBUTEROL                          /00139501/ [Concomitant]
  8. UNSPECIFIED MEDICATION [Concomitant]

REACTIONS (10)
  - Crying [Not Recovered/Not Resolved]
  - Application site irritation [Not Recovered/Not Resolved]
  - Inadequate analgesia [Not Recovered/Not Resolved]
  - Drug withdrawal syndrome [Not Recovered/Not Resolved]
  - Tremor [Not Recovered/Not Resolved]
  - Hyperhidrosis [Not Recovered/Not Resolved]
  - Nausea [Not Recovered/Not Resolved]
  - Vomiting [Not Recovered/Not Resolved]
  - Headache [Not Recovered/Not Resolved]
  - Product quality issue [Not Recovered/Not Resolved]
